FAERS Safety Report 11752924 (Version 1)
Quarter: 2015Q4

REPORT INFORMATION
  Report Type: Spontaneous
  Country: US (occurrence: None)
  Receive Date: 20151117
  Receipt Date: 20151117
  Transmission Date: 20160304
  Serious: No
  Sender: FDA-Public Use
  Company Number: None

PATIENT
  Age: 55 Year
  Sex: Female

DRUGS (2)
  1. PLEGRIDY [Suspect]
     Active Substance: PEGINTERFERON BETA-1A
     Indication: MULTIPLE SCLEROSIS
     Dosage: Q14D
     Route: 058
     Dates: start: 20150513, end: 20151020
  2. PLEGRIDY [Suspect]
     Active Substance: PEGINTERFERON BETA-1A
     Indication: PRODUCT USED FOR UNKNOWN INDICATION
     Dosage: Q14D
     Route: 058
     Dates: start: 20150513, end: 20151020

REACTIONS (7)
  - Injection site irritation [None]
  - Fatigue [None]
  - Injection site urticaria [None]
  - Irritability [None]
  - Injection site pruritus [None]
  - Pain [None]
  - Headache [None]

NARRATIVE: CASE EVENT DATE: 20151020
